FAERS Safety Report 18380651 (Version 1)
Quarter: 2020Q4

REPORT INFORMATION
  Report Type: Spontaneous
  Country: US (occurrence: US)
  Receive Date: 20201013
  Receipt Date: 20201013
  Transmission Date: 20210114
  Serious: Yes (Hospitalization)
  Sender: FDA-Public Use
  Company Number: US-ROCHE-2695394

PATIENT
  Sex: Female

DRUGS (15)
  1. LOSARTAN POTASSIUM. [Concomitant]
     Active Substance: LOSARTAN POTASSIUM
  2. DEXILANT [Concomitant]
     Active Substance: DEXLANSOPRAZOLE
  3. XOLAIR [Suspect]
     Active Substance: OMALIZUMAB
     Indication: ASTHMA
     Dosage: 75 MG /0.5 ML PREFILLED SYRINGE
     Route: 058
     Dates: start: 20140220
  4. FUROSEMIDE. [Concomitant]
     Active Substance: FUROSEMIDE
  5. KLOR-CON M20 [Concomitant]
     Active Substance: POTASSIUM CHLORIDE
  6. PREDNISONE. [Concomitant]
     Active Substance: PREDNISONE
  7. XOLAIR [Suspect]
     Active Substance: OMALIZUMAB
  8. DILTIAZEM HCL [Concomitant]
     Active Substance: DILTIAZEM HYDROCHLORIDE
  9. LEVOTHYROXINE SODIUM. [Concomitant]
     Active Substance: LEVOTHYROXINE SODIUM
  10. AMOXICILLIN. [Concomitant]
     Active Substance: AMOXICILLIN
  11. XOLAIR [Suspect]
     Active Substance: OMALIZUMAB
  12. OMEPRAZOLE. [Concomitant]
     Active Substance: OMEPRAZOLE
  13. ZYFLO CR [Concomitant]
     Active Substance: ZILEUTON
  14. FLUCONAZOLE. [Concomitant]
     Active Substance: FLUCONAZOLE
  15. HYDROCODONE [Concomitant]
     Active Substance: HYDROCODONE

REACTIONS (1)
  - COVID-19 [Not Recovered/Not Resolved]
